FAERS Safety Report 14633858 (Version 1)
Quarter: 2018Q1

REPORT INFORMATION
  Report Type: Spontaneous
  Country: GB (occurrence: GB)
  Receive Date: 20180314
  Receipt Date: 20180314
  Transmission Date: 20180509
  Serious: Yes (Life-Threatening, Hospitalization, Other)
  Sender: FDA-Public Use
  Company Number: GB-ACCORD-064162

PATIENT
  Age: 51 Year
  Sex: Female

DRUGS (2)
  1. BISOPROLOL [Suspect]
     Active Substance: BISOPROLOL
  2. AMLODIPINE [Suspect]
     Active Substance: AMLODIPINE BESYLATE

REACTIONS (4)
  - Hypotension [Recovered/Resolved]
  - Intentional overdose [Unknown]
  - Vasoplegia syndrome [Recovered/Resolved]
  - Heart rate decreased [Recovered/Resolved]
